FAERS Safety Report 6389939-8 (Version None)
Quarter: 2009Q4

REPORT INFORMATION
  Report Type: 
  Country: None (occurrence: None)
  Receive Date: 20091006
  Receipt Date: 20090513
  Transmission Date: 20100525
  Serious: No
  Sender: FDA-Public Use
  Company Number: US-BRISTOL-MYERS SQUIBB COMPANY-14622831

PATIENT
  Age: 59 Year
  Sex: Female

DRUGS (5)
  1. AVAPRO [Suspect]
     Dates: start: 20060101
  2. PROMETRIUM [Concomitant]
  3. VIVELLE [Concomitant]
  4. ACTONEL [Concomitant]
  5. HYDROCHLOROTHIAZIDE [Concomitant]

REACTIONS (1)
  - ADVERSE EVENT [None]
